FAERS Safety Report 12370929 (Version 2)
Quarter: 2016Q3

REPORT INFORMATION
  Report Type: Spontaneous
  Country: US (occurrence: US)
  Receive Date: 20160516
  Receipt Date: 20160712
  Transmission Date: 20161109
  Serious: No
  Sender: FDA-Public Use
  Company Number: US-ASTRAZENECA-2016SE47950

PATIENT
  Sex: Male

DRUGS (1)
  1. BRILINTA [Suspect]
     Active Substance: TICAGRELOR
     Indication: ACUTE CORONARY SYNDROME
     Dosage: 90 UNKNOWN TWO TIMES A DAY
     Route: 048
     Dates: start: 201604

REACTIONS (3)
  - Personality change [Unknown]
  - Agitation [Unknown]
  - Impatience [Unknown]

NARRATIVE: CASE EVENT DATE: 201604
